FAERS Safety Report 6737522-4 (Version None)
Quarter: 2010Q2

REPORT INFORMATION
  Report Type: 
  Country: None (occurrence: None)
  Receive Date: 20100524
  Receipt Date: 20100524
  Transmission Date: 20101027
  Serious: Yes (Other)
  Sender: FDA-Public Use
  Company Number: None

PATIENT
  Age: 11 Month
  Sex: Female
  Weight: 9.0719 kg

DRUGS (1)
  1. CONCENTRATED TYLENOL INFANT DROPS [Suspect]
     Indication: PYREXIA
     Dosage: 0.8ML EVERY 4 HR PO
     Route: 048

REACTIONS (4)
  - PRODUCT CONTAMINATION MICROBIAL [None]
  - PRODUCT QUALITY ISSUE [None]
  - RASH [None]
  - VOMITING [None]
